FAERS Safety Report 7956600-5 (Version None)
Quarter: 2011Q4

REPORT INFORMATION
  Report Type: 
  Country: None (occurrence: None)
  Receive Date: 20111205
  Receipt Date: 20111123
  Transmission Date: 20120403
  Serious: Yes (Other)
  Sender: FDA-Public Use
  Company Number: US-JNJFOC-20111013501

PATIENT
  Age: 86 Year
  Sex: Male
  Weight: 79.38 kg

DRUGS (10)
  1. IBUPROFEN (ADVIL) [Suspect]
     Indication: ARTHRALGIA
  2. ALLOPURINOL [Concomitant]
     Indication: GOUT
     Dosage: SINCE YEARS
     Route: 065
  3. VITAMIN D [Concomitant]
     Indication: MEDICAL DIET
  4. COUMADIN [Concomitant]
     Indication: ANTICOAGULANT THERAPY
     Dosage: SINCE YEARS
     Route: 065
     Dates: start: 20090101
  5. BENAZEPRIL HYDROCHLORIDE [Concomitant]
     Indication: HYPERTENSION
     Dosage: MANY YEARS
     Route: 065
  6. VITAMIN B COMPLEX CAP [Concomitant]
     Indication: MEDICAL DIET
  7. VITAMIN-MINERAL COMPOUND TAB [Concomitant]
     Indication: PROPHYLAXIS
     Dosage: 6 MONTHS
     Dates: start: 20110101
  8. EXTRA STRENGTH TYLENOL [Suspect]
     Indication: ARTHRALGIA
     Dosage: EVERY NIGHT FOR ABOUT 2 WEEKS
     Route: 048
     Dates: start: 20111027, end: 20111122
  9. EXTRA STRENGTH TYLENOL [Suspect]
     Indication: PAIN IN EXTREMITY
     Dosage: EVERY NIGHT FOR ABOUT 2 WEEKS
     Route: 048
     Dates: start: 20111027, end: 20111122
  10. LEVOTHYROXINE SODIUM [Concomitant]
     Indication: THYROID DISORDER
     Dosage: OVER ONE YEAR
     Route: 065

REACTIONS (3)
  - PRURITUS [None]
  - INTENTIONAL DRUG MISUSE [None]
  - HAEMATURIA [None]
